FAERS Safety Report 4748328-X (Version None)
Quarter: 2005Q3

REPORT INFORMATION
  Report Type: 
  Country: None (occurrence: None)
  Receive Date: 20050815
  Receipt Date: 20050426
  Transmission Date: 20060218
  Serious: No
  Sender: FDA-Public Use
  Company Number: USA050188103

PATIENT
  Age: 67 Year
  Sex: Male
  Weight: 114 kg

DRUGS (9)
  1. CIALIS [Suspect]
     Indication: ERECTILE DYSFUNCTION
     Dosage: 20 MG
     Dates: start: 20031201
  2. ENALAPRIL [Concomitant]
  3. GLUCOPHAGE [Concomitant]
  4. LOVASTATIN [Concomitant]
  5. ATENOLOL [Concomitant]
  6. CLONIDINE [Concomitant]
  7. TEMAZEPAM [Concomitant]
  8. GLUCOVANCE [Concomitant]
  9. HYTRIN [Concomitant]

REACTIONS (2)
  - HEPATIC FUNCTION ABNORMAL [None]
  - THERAPEUTIC RESPONSE DECREASED [None]
